FAERS Safety Report 9869830 (Version 2)
Quarter: 2014Q1

REPORT INFORMATION
  Report Type: Spontaneous
  Country: GB (occurrence: GB)
  Receive Date: 20140205
  Receipt Date: 20140205
  Transmission Date: 20141002
  Serious: Yes (Congenital Anomaly)
  Sender: FDA-Public Use
  Company Number: GB-SANOFI-AVENTIS-2013SA086712

PATIENT
  Sex: Female

DRUGS (1)
  1. CLOMID [Suspect]
     Indication: MATERNAL EXPOSURE TIMING UNSPECIFIED
     Route: 064

REACTIONS (8)
  - Anencephaly [Not Recovered/Not Resolved]
  - Foetal exposure during pregnancy [Unknown]
  - Craniorachischisis [Not Recovered/Not Resolved]
  - Ectopia cordis [Not Recovered/Not Resolved]
  - Congenital diaphragmatic anomaly [Not Recovered/Not Resolved]
  - Gastroschisis [Not Recovered/Not Resolved]
  - Kyphoscoliosis [Not Recovered/Not Resolved]
  - Congenital anomaly [Not Recovered/Not Resolved]
